FAERS Safety Report 4320934-6 (Version None)
Quarter: 2004Q1

REPORT INFORMATION
  Report Type: 
  Country: None (occurrence: None)
  Receive Date: 20040318
  Receipt Date: 20040308
  Transmission Date: 20041129
  Serious: Yes (Hospitalization, Other)
  Sender: FDA-Public Use
  Company Number: HQWYE640830OCT03

PATIENT
  Age: 69 Year
  Sex: Female
  Weight: 117.5 kg

DRUGS (6)
  1. MYLOTARG [Suspect]
     Indication: ACUTE MYELOID LEUKAEMIA
     Dosage: 15 MG 1X PER 1 DAY, INTRAVENOUS
     Route: 042
     Dates: start: 20030926, end: 20030926
  2. MYLOTARG [Suspect]
     Indication: ACUTE MYELOID LEUKAEMIA
     Dosage: 15 MG 1X PER 1 DAY, INTRAVENOUS
     Route: 042
     Dates: start: 20031008, end: 20031008
  3. ZOFRAN [Concomitant]
  4. PHENERGAN [Concomitant]
  5. ALLOPURINOL [Concomitant]
  6. LEVAQUIN [Concomitant]

REACTIONS (15)
  - ABDOMINAL PAIN [None]
  - CHILLS [None]
  - CONSTIPATION [None]
  - CONTUSION [None]
  - DECREASED APPETITE [None]
  - GINGIVAL BLEEDING [None]
  - HAEMATEMESIS [None]
  - HAEMOGLOBIN DECREASED [None]
  - MARKEDLY REDUCED DIETARY INTAKE [None]
  - NAUSEA [None]
  - NEUTROPENIA [None]
  - RETCHING [None]
  - THROMBOCYTOPENIA [None]
  - VOMITING [None]
  - WHITE BLOOD CELL COUNT DECREASED [None]
